FAERS Safety Report 7605939-1 (Version None)
Quarter: 2011Q3

REPORT INFORMATION
  Report Type: 
  Country: None (occurrence: None)
  Receive Date: 20110713
  Receipt Date: 20110629
  Transmission Date: 20111222
  Serious: Yes (Hospitalization)
  Sender: FDA-Public Use
  Company Number: PHHY2011US46154

PATIENT
  Sex: Female
  Weight: 82.902 kg

DRUGS (4)
  1. FOLIC ACID [Concomitant]
     Dosage: 1 MG, UNK
     Route: 048
  2. EXJADE [Suspect]
     Indication: IRON OVERLOAD
     Dosage: 1500 MG, QD
     Route: 048
     Dates: start: 20110311, end: 20110329
  3. RED BLOOD CELLS [Concomitant]
     Dosage: 2 U, QD
     Route: 042
  4. IBU [Concomitant]
     Dosage: 800 MG, UNK
     Route: 048

REACTIONS (4)
  - VISION BLURRED [None]
  - SICKLE CELL ANAEMIA WITH CRISIS [None]
  - SEPSIS [None]
  - TINNITUS [None]
